FAERS Safety Report 10215788 (Version 4)
Quarter: 2014Q3

REPORT INFORMATION
  Report Type: Spontaneous
  Country: JP (occurrence: JP)
  Receive Date: 20140604
  Receipt Date: 20140923
  Transmission Date: 20150326
  Serious: Yes (Other)
  Sender: FDA-Public Use
  Company Number: PHHY2014JP067132

PATIENT
  Age: 55 Year
  Sex: Male

DRUGS (15)
  1. EXJADE [Suspect]
     Active Substance: DEFERASIROX
     Indication: MYELODYSPLASTIC SYNDROME
     Dosage: 1375 MG, UNK
     Route: 048
     Dates: start: 200805
  2. GLIMEPIRIDE. [Concomitant]
     Active Substance: GLIMEPIRIDE
     Dosage: 3 MG, UNK
     Route: 048
  3. CLOXAZOLAM [Concomitant]
     Active Substance: CLOXAZOLAM
     Dosage: 1 MG, UNK
     Route: 048
  4. AMLODIPINE BESILATE [Concomitant]
     Active Substance: AMLODIPINE BESYLATE
  5. PREDNISOLONE. [Concomitant]
     Active Substance: PREDNISOLONE
     Dosage: 10 MG, UNK
     Route: 048
  6. SULPIRIDE [Concomitant]
     Active Substance: SULPIRIDE
     Dosage: 50 MG, UNK
     Route: 048
  7. ZOPICLONE [Concomitant]
     Active Substance: ZOPICLONE
     Dosage: 7.5 MG, UNK
     Route: 048
  8. LANSOPRAZOLE. [Concomitant]
     Active Substance: LANSOPRAZOLE
     Route: 048
     Dates: start: 200712, end: 200803
  9. ACARBOSE. [Concomitant]
     Active Substance: ACARBOSE
     Dosage: 300 MG, UNK
     Route: 048
  10. METFORMIN HYDROCHLORIDE. [Concomitant]
     Active Substance: METFORMIN HYDROCHLORIDE
     Dosage: 750 MG, UNK
     Route: 048
  11. AMLODIN [Interacting]
     Active Substance: AMLODIPINE BESYLATE
     Indication: HYPERTENSION
     Dosage: 5 MG, DAILY
     Route: 048
     Dates: start: 200806, end: 200807
  12. PYRIDOXAL PHOSPHATE [Concomitant]
     Active Substance: PYRIDOXAL PHOSPHATE
     Dosage: 40 MG, UNK
     Route: 048
  13. DANAZOL. [Concomitant]
     Active Substance: DANAZOL
     Indication: ANAEMIA
     Dosage: 300 MG
     Route: 048
     Dates: start: 200210
  14. EXJADE [Interacting]
     Active Substance: DEFERASIROX
     Indication: REFRACTORY CYTOPENIA WITH UNILINEAGE DYSPLASIA
     Dosage: 1375 MG
     Route: 048
     Dates: start: 200806, end: 200807
  15. FAMOTIDINE. [Concomitant]
     Active Substance: FAMOTIDINE
     Dosage: 20 MG
     Dates: start: 200803

REACTIONS (8)
  - Aplasia pure red cell [Recovered/Resolved]
  - Thrombocytopenia [Recovered/Resolved]
  - Hypertension [Unknown]
  - Anaemia [Recovered/Resolved]
  - Erythroblast count decreased [Recovered/Resolved]
  - Epistaxis [Unknown]
  - Reticulocyte count decreased [Recovered/Resolved]
  - Drug interaction [Unknown]

NARRATIVE: CASE EVENT DATE: 200805
